FAERS Safety Report 8449656-7 (Version None)
Quarter: 2012Q2

REPORT INFORMATION
  Report Type: 
  Country: None (occurrence: None)
  Receive Date: 20120620
  Receipt Date: 20120605
  Transmission Date: 20120825
  Serious: Yes (Other)
  Sender: FDA-Public Use
  Company Number: US-RB-040088-12

PATIENT
  Sex: Female

DRUGS (2)
  1. DELSYM [Suspect]
     Indication: PRODUCT USED FOR UNKNOWN INDICATION
     Route: 048
     Dates: start: 20120518
  2. ZITHROMAX [Concomitant]
     Indication: BRONCHITIS

REACTIONS (14)
  - TREMOR [None]
  - ADVERSE REACTION [None]
  - THINKING ABNORMAL [None]
  - GAIT DISTURBANCE [None]
  - PANIC ATTACK [None]
  - NIGHTMARE [None]
  - PALPITATIONS [None]
  - HALLUCINATION [None]
  - DYSPNOEA [None]
  - INSOMNIA [None]
  - PAIN [None]
  - DRY THROAT [None]
  - ANXIETY [None]
  - DRY MOUTH [None]
